FAERS Safety Report 16370634 (Version 1)
Quarter: 2019Q2

REPORT INFORMATION
  Report Type: Report from Study
  Country: BR (occurrence: BR)
  Receive Date: 20190530
  Receipt Date: 20190530
  Transmission Date: 20190711
  Serious: Yes (Hospitalization, Other)
  Sender: FDA-Public Use
  Company Number: BR-ALEXION PHARMACEUTICALS INC.-A201908025

PATIENT
  Age: 34 Year
  Sex: Female
  Weight: 48 kg

DRUGS (8)
  1. SOLIRIS [Suspect]
     Active Substance: ECULIZUMAB
     Dosage: 1200 MG, Q2W
     Route: 042
     Dates: start: 20140304
  2. EVEROLIMUS. [Concomitant]
     Active Substance: EVEROLIMUS
     Indication: IMMUNOSUPPRESSION
     Dosage: 1/2 TABLET, BID
     Route: 065
     Dates: start: 2013
  3. OMEPRAZOLE. [Concomitant]
     Active Substance: OMEPRAZOLE
     Indication: PRODUCT USED FOR UNKNOWN INDICATION
     Dosage: 1 TABLET, QD
     Route: 065
     Dates: start: 2013
  4. ENALAPRIL [Suspect]
     Active Substance: ENALAPRIL
     Indication: PRODUCT USED FOR UNKNOWN INDICATION
     Dosage: UNK
     Route: 065
  5. SOLIRIS [Suspect]
     Active Substance: ECULIZUMAB
     Indication: ATYPICAL HAEMOLYTIC URAEMIC SYNDROME
     Dosage: 900 MG, QW
     Route: 042
     Dates: start: 20140204, end: 20140225
  6. NITROFURANTOIN. [Concomitant]
     Active Substance: NITROFURANTOIN
     Indication: ANTIBIOTIC THERAPY
     Dosage: 1 TABLET, AT NIGHT
     Route: 065
  7. TACROLIMUS. [Concomitant]
     Active Substance: TACROLIMUS
     Indication: IMMUNOSUPPRESSION
     Dosage: 3 TABLETS, BID
     Route: 065
     Dates: start: 2013
  8. ATENOLOL. [Concomitant]
     Active Substance: ATENOLOL
     Indication: BLOOD PRESSURE INCREASED
     Dosage: 25 MG, BID
     Route: 065

REACTIONS (9)
  - Headache [Unknown]
  - Blood pressure decreased [Unknown]
  - Pneumonia [Unknown]
  - Back pain [Unknown]
  - Cough [Unknown]
  - Pain [Unknown]
  - Loss of personal independence in daily activities [Unknown]
  - Gait disturbance [Unknown]
  - Hypertension [Unknown]

NARRATIVE: CASE EVENT DATE: 20190405
